FAERS Safety Report 10090450 (Version 2)
Quarter: 2014Q2

REPORT INFORMATION
  Report Type: Spontaneous
  Country: US (occurrence: US)
  Receive Date: 20140421
  Receipt Date: 20140509
  Transmission Date: 20141212
  Serious: Yes (Other)
  Sender: FDA-Public Use
  Company Number: US-BAYER-2014-056476

PATIENT
  Age: 42 Year
  Sex: Female

DRUGS (6)
  1. YASMIN [Suspect]
  2. GIANVI [Suspect]
  3. YAZ [Suspect]
  4. LEVOTHYROXINE [Concomitant]
     Dosage: 112 MG, UNK
     Route: 048
     Dates: start: 20070809
  5. AZITHROMYCIN [Concomitant]
     Dosage: 250 MG, UNK
     Route: 048
     Dates: start: 20070813
  6. TRICOR [Concomitant]
     Dosage: 145 MG, UNK
     Route: 048
     Dates: start: 20070824

REACTIONS (1)
  - Thrombophlebitis superficial [None]
